FAERS Safety Report 6917242-3 (Version None)
Quarter: 2010Q3

REPORT INFORMATION
  Report Type: 
  Country: None (occurrence: None)
  Receive Date: 20100810
  Receipt Date: 20100730
  Transmission Date: 20110219
  Serious: Yes (Hospitalization)
  Sender: FDA-Public Use
  Company Number: US-ROCHE-647288

PATIENT
  Sex: Female
  Weight: 79 kg

DRUGS (12)
  1. TRASTUZUMAB [Suspect]
     Dosage: DOSE LEVEL: 6 MG/KG, DOSAGE FORM : VIALS LAST DOSE PRIOR TO SAE: 16 OCTOBER 2009.
     Route: 042
     Dates: start: 20090717
  2. BEVACIZUMAB [Suspect]
     Dosage: DOSE LEVEL: 15MG/KG, DOSAGE FORM : VIALS. PERMANENTLY DISCONTINUED.
     Route: 042
     Dates: start: 20090717, end: 20091016
  3. CARBOPLATIN [Suspect]
     Dosage: DOSE LEVEL : 6 AUC, DOSAGE FORM : VIALS
     Route: 042
     Dates: start: 20090717
  4. CARBOPLATIN [Suspect]
     Dosage: DOSE LEVEL : 4 AUC.  DOSE REDUCED.
     Route: 042
     Dates: start: 20091106
  5. DOCETAXEL [Suspect]
     Dosage: DOSE LEVEL : 75 MG/M2; FORM: VIAL
     Route: 042
     Dates: start: 20090717
  6. DOCETAXEL [Suspect]
     Dosage: DOSE LEVEL : 50 MG . DOSE REDUCED.
     Route: 042
     Dates: start: 20091106
  7. MOBIC [Concomitant]
  8. ALOXI [Concomitant]
     Dates: start: 20090814, end: 20090814
  9. DECADRON [Concomitant]
     Dates: start: 20090814, end: 20090814
  10. ZANTAC [Concomitant]
     Dates: start: 20090814, end: 20090814
  11. ATIVAN [Concomitant]
     Dates: start: 20090814
  12. COMPAZINE [Concomitant]
     Dates: start: 20090814

REACTIONS (3)
  - DEHYDRATION [None]
  - NEUTROPENIC INFECTION [None]
  - SKIN INFECTION [None]
